FAERS Safety Report 16370386 (Version 1)
Quarter: 2019Q2

REPORT INFORMATION
  Report Type: Spontaneous
  Country: FR (occurrence: FR)
  Receive Date: 20190530
  Receipt Date: 20190530
  Transmission Date: 20190711
  Serious: Yes (Hospitalization)
  Sender: FDA-Public Use
  Company Number: FR-ZYDUS-037083

PATIENT
  Age: 66 Year
  Sex: Female
  Weight: 60 kg

DRUGS (7)
  1. ATENOLOL. [Concomitant]
     Active Substance: ATENOLOL
  2. ATORVASTATIN [Concomitant]
     Active Substance: ATORVASTATIN
  3. EVEROLIMUS. [Suspect]
     Active Substance: EVEROLIMUS
     Indication: PROPHYLAXIS AGAINST TRANSPLANT REJECTION
     Route: 048
     Dates: start: 2011, end: 201810
  4. MYCOPHENOLIC ACID. [Concomitant]
     Active Substance: MYCOPHENOLIC ACID
  5. PREDNISONE. [Concomitant]
     Active Substance: PREDNISONE
  6. WARFARIN [Concomitant]
     Active Substance: WARFARIN
  7. CANDESARTAN. [Suspect]
     Active Substance: CANDESARTAN
     Indication: HYPERTENSION
     Route: 048
     Dates: end: 201810

REACTIONS (1)
  - Interstitial lung disease [Recovering/Resolving]

NARRATIVE: CASE EVENT DATE: 201810
